FAERS Safety Report 17362940 (Version 3)
Quarter: 2020Q1

REPORT INFORMATION
  Report Type: Spontaneous
  Country: JP (occurrence: JP)
  Receive Date: 20200203
  Receipt Date: 20200217
  Transmission Date: 20200409
  Serious: Yes (Hospitalization)
  Sender: FDA-Public Use
  Company Number: JP-PFIZER INC-2019557074

PATIENT
  Age: 66 Year
  Sex: Male
  Weight: 48 kg

DRUGS (1)
  1. OXALIPLATIN 50MG/10ML HOSPIRA [Suspect]
     Active Substance: OXALIPLATIN
     Indication: NEURALGIA
     Dosage: 130.9 MG, DAILY
     Dates: start: 20190514, end: 20200107

REACTIONS (5)
  - Abdominal pain [Recovered/Resolved]
  - Back pain [Recovered/Resolved]
  - Neuralgia [Unknown]
  - Pain [Recovered/Resolved]
  - Facial pain [Recovered/Resolved]

NARRATIVE: CASE EVENT DATE: 20191210
